FAERS Safety Report 7658773-0 (Version None)
Quarter: 2011Q3

REPORT INFORMATION
  Report Type: 
  Country: None (occurrence: None)
  Receive Date: 20110805
  Receipt Date: 20110805
  Transmission Date: 20111222
  Serious: Yes (Hospitalization)
  Sender: FDA-Public Use
  Company Number: None

PATIENT
  Age: 93 Year
  Sex: Female
  Weight: 65 kg

DRUGS (9)
  1. CALCIUM + VITAMIN D [Concomitant]
     Route: 048
  2. LOSARTAN POTASSIUM [Concomitant]
     Route: 048
  3. PRAVASTATIN [Concomitant]
  4. TROSPIUM CHLORIDE [Concomitant]
     Route: 048
  5. ALENDRONATE SODIUM [Concomitant]
     Route: 048
  6. GLIPIZIDE AND METFORMIN HCL [Concomitant]
     Route: 048
  7. DIGOXIN [Suspect]
     Indication: ATRIAL FIBRILLATION
     Dosage: 250 MCG
     Route: 048
  8. ASPIRIN [Concomitant]
     Route: 048
  9. HYDROCHLOROTHIAZIDE [Concomitant]
     Route: 048

REACTIONS (6)
  - TOXICITY TO VARIOUS AGENTS [None]
  - MENTAL STATUS CHANGES [None]
  - CARDIOACTIVE DRUG LEVEL INCREASED [None]
  - FATIGUE [None]
  - ASTHENIA [None]
  - HYPOPHAGIA [None]
